FAERS Safety Report 15725971 (Version 1)
Quarter: 2018Q4

REPORT INFORMATION
  Report Type: Report from Study
  Country: IN (occurrence: IN)
  Receive Date: 20181216
  Receipt Date: 20181216
  Transmission Date: 20190205
  Serious: Yes (Death)
  Sender: FDA-Public Use
  Company Number: PHHY2018IN187425

PATIENT
  Sex: Female

DRUGS (1)
  1. REVOLADE [Suspect]
     Active Substance: ELTROMBOPAG
     Indication: APLASTIC ANAEMIA
     Dosage: 50 MG, QD
     Route: 048
     Dates: start: 20180805

REACTIONS (1)
  - Death [Fatal]

NARRATIVE: CASE EVENT DATE: 20180905
